FAERS Safety Report 10813473 (Version 1)
Quarter: 2015Q1

REPORT INFORMATION
  Report Type: Spontaneous
  Country: NL (occurrence: NL)
  Receive Date: 20150218
  Receipt Date: 20150218
  Transmission Date: 20150721
  Serious: Yes (Hospitalization)
  Sender: FDA-Public Use
  Company Number: NL-ROCHE-1538863

PATIENT
  Age: 53 Year
  Sex: Male
  Weight: 88 kg

DRUGS (6)
  1. ATAZANAVIR [Concomitant]
     Active Substance: ATAZANAVIR
     Dosage: 1 KEER PER DAG 1 STUK(S), EXTRA INFO: 300MG
     Route: 048
     Dates: start: 2011
  2. PEGASYS [Suspect]
     Active Substance: PEGINTERFERON ALFA-2A
     Indication: HEPATITIS C
     Route: 058
     Dates: start: 20141201, end: 20150127
  3. SOFOSBUVIR [Interacting]
     Active Substance: SOFOSBUVIR
     Indication: HEPATITIS C
     Route: 048
     Dates: start: 20141201, end: 20150127
  4. COPEGUS [Interacting]
     Active Substance: RIBAVIRIN
     Indication: HEPATITIS C
     Route: 048
     Dates: start: 20141201
  5. TRUVADA [Concomitant]
     Active Substance: EMTRICITABINE\TENOFOVIR DISOPROXIL FUMARATE
     Dosage: 1 KEER PER DAG 1 STUK(S), EXTRA INFO: 200/245MG
     Route: 065
     Dates: start: 2011
  6. RITONAVIR. [Concomitant]
     Active Substance: RITONAVIR
     Dosage: 1 KEER PER DAG 1 STUK(S), EXTRA INFO: 100MG
     Route: 048
     Dates: start: 2011

REACTIONS (3)
  - Hypoxia [Recovered/Resolved]
  - Hypocapnia [Recovered/Resolved]
  - Drug interaction [Unknown]

NARRATIVE: CASE EVENT DATE: 20150120
